FAERS Safety Report 21374939 (Version 1)
Quarter: 2022Q3

REPORT INFORMATION
  Report Type: Report from Study
  Country: US (occurrence: US)
  Receive Date: 20220926
  Receipt Date: 20220926
  Transmission Date: 20221026
  Serious: Yes (Hospitalization, Other)
  Sender: FDA-Public Use
  Company Number: US-ABBVIE-4129454

PATIENT
  Age: 24 Year
  Sex: Female
  Weight: 74.4 kg

DRUGS (3)
  1. HUMIRA [Suspect]
     Active Substance: ADALIMUMAB
     Indication: Product used for unknown indication
     Route: 058
     Dates: end: 20210715
  2. ACETAMINOPHEN [Concomitant]
     Active Substance: ACETAMINOPHEN
     Indication: Product used for unknown indication
     Dosage: 500MG
  3. MIRALAX [Concomitant]
     Active Substance: POLYETHYLENE GLYCOL 3350
     Indication: Product used for unknown indication
     Dosage: PRN

REACTIONS (6)
  - Abdominal pain [Unknown]
  - Maternal exposure during pregnancy [Unknown]
  - Intestinal obstruction [Unknown]
  - Surgery [Recovered/Resolved]
  - Intestinal resection [Unknown]
  - Surgery [Unknown]

NARRATIVE: CASE EVENT DATE: 20200101
